FAERS Safety Report 5676241-2 (Version None)
Quarter: 2008Q1

REPORT INFORMATION
  Report Type: 
  Country: None (occurrence: None)
  Receive Date: 20080321
  Receipt Date: 20080319
  Transmission Date: 20080703
  Serious: Yes (Hospitalization)
  Sender: FDA-Public Use
  Company Number: US-PFIZER INC-2007025586

PATIENT
  Sex: Male

DRUGS (3)
  1. MARAVIROC [Suspect]
     Indication: HIV TEST POSITIVE
     Route: 048
  2. SEPTRA [Concomitant]
     Dosage: TEXT:1 DF
     Route: 048
  3. RITONAVIR [Concomitant]
     Route: 048
     Dates: start: 20050620, end: 20070328

REACTIONS (1)
  - MYOCARDIAL INFARCTION [None]
